FAERS Safety Report 13102885 (Version 2)
Quarter: 2017Q1

REPORT INFORMATION
  Report Type: Spontaneous
  Country: KR (occurrence: KR)
  Receive Date: 20170110
  Receipt Date: 20170306
  Transmission Date: 20170428
  Serious: Yes (Other)
  Sender: FDA-Public Use
  Company Number: KR-009507513-1701KOR004103

PATIENT
  Age: 74 Year
  Sex: Female
  Weight: 61.5 kg

DRUGS (21)
  1. URSA TABLETS [Concomitant]
     Indication: DRUG TOXICITY PROPHYLAXIS
     Dosage: 1.5 TABLET
     Route: 048
     Dates: start: 20160620, end: 20160704
  2. NEXIUM [Concomitant]
     Active Substance: ESOMEPRAZOLE MAGNESIUM
     Indication: PROPHYLAXIS AGAINST GASTROINTESTINAL ULCER
     Dosage: 40 MG, QD
     Route: 048
     Dates: start: 20160620, end: 20160704
  3. DUROGESIC [Concomitant]
     Active Substance: FENTANYL
     Indication: PANCREATIC CARCINOMA
     Dosage: STRENGTH: 12 MCG/H 5.25 CM2 PATCH, DOSE: 12 MCG/HR: ROUTE: SKIN
     Route: 003
     Dates: start: 20160620, end: 20160703
  4. CAFSOL [Concomitant]
  5. CHLORPHENIRAMINE MALEATE. [Concomitant]
     Active Substance: CHLORPHENIRAMINE MALEATE
     Indication: ANTIALLERGIC THERAPY
     Dosage: 2 MG, QD
     Route: 042
     Dates: start: 20160621, end: 20160704
  6. EMEND (FOSAPREPITANT DIMEGLUMINE) [Suspect]
     Active Substance: FOSAPREPITANT DIMEGLUMINE
     Indication: PROPHYLAXIS OF NAUSEA AND VOMITING
     Dosage: 150 MG-ONCE
     Route: 042
     Dates: start: 20160620, end: 20160620
  7. CISPLAN [Concomitant]
     Active Substance: CISPLATIN
     Indication: PANCREATIC CARCINOMA
     Dosage: STRENGTH: 50 MG/100 ML, DOSE: 100 MG-ONCE, CYCLE 1
     Route: 042
     Dates: start: 20160620, end: 20160620
  8. FLUOROURACIL. [Concomitant]
     Active Substance: FLUOROURACIL
     Indication: PANCREATIC CARCINOMA
     Dosage: STRENGTH: 1000 MG/20 ML, DOSE: 1660 MG, CYCLE 1
     Route: 042
     Dates: start: 20160620, end: 20160623
  9. ALOXI [Concomitant]
     Active Substance: PALONOSETRON HYDROCHLORIDE
     Indication: PROPHYLAXIS OF NAUSEA AND VOMITING
     Dosage: UNK, ONCE
     Route: 042
     Dates: start: 20160620, end: 20160620
  10. TRISON (CEFTRIAXONE SODIUM) [Concomitant]
     Indication: PROPHYLAXIS
     Dosage: 2 G, QD
     Route: 042
     Dates: start: 20160620, end: 20160704
  11. SYNTHROID [Concomitant]
     Active Substance: LEVOTHYROXINE SODIUM
     Indication: HYPOTHYROIDISM
     Dosage: 0.15 MG, QD
     Route: 048
     Dates: start: 20160620, end: 20160704
  12. ULCERLMIN [Concomitant]
     Active Substance: SUCRALFATE
     Indication: PROPHYLAXIS AGAINST GASTROINTESTINAL ULCER
     Dosage: STRENGTH: 1G/15 ML, DOSE: 15 ML, TID
     Route: 048
     Dates: start: 20160620, end: 20160624
  13. MACPERAN [Concomitant]
     Active Substance: METOCLOPRAMIDE HYDROCHLORIDE
     Indication: PROPHYLAXIS OF NAUSEA AND VOMITING
     Dosage: 10 ML, QD
     Route: 042
     Dates: start: 20160621, end: 20160704
  14. DEXAMETHASONE SODIUM PHOSPHATE. [Concomitant]
     Active Substance: DEXAMETHASONE SODIUM PHOSPHATE
     Indication: PROPHYLAXIS OF NAUSEA AND VOMITING
     Dosage: STRENGTH: 5 MG/ML, DOSE:10 MG
     Route: 042
     Dates: start: 20160620, end: 20160623
  15. WINUF [Concomitant]
     Indication: PROPHYLAXIS
     Dosage: 1085 ML
     Route: 042
     Dates: start: 20160620, end: 20160624
  16. FEROBA [Concomitant]
     Active Substance: FERROUS SULFATE\PROTEASE
     Indication: ANAEMIA PROPHYLAXIS
     Dosage: 256 MG, BID
     Route: 048
     Dates: start: 20160620, end: 20160620
  17. ALGIRON [Concomitant]
     Active Substance: CIMETROPIUM BROMIDE
     Indication: OESOPHAGOGASTRODUODENOSCOPY
     Dosage: 5 MG, QD
     Route: 042
     Dates: start: 20160620, end: 20160630
  18. ABSTRAL [Concomitant]
     Active Substance: FENTANYL CITRATE
     Indication: PANCREATIC CARCINOMA
     Dosage: 200 MICROGRAM, 6 DAILY
     Route: 060
     Dates: start: 20160620, end: 20160704
  19. LASIX [Concomitant]
     Active Substance: FUROSEMIDE
     Indication: PROPHYLAXIS
     Dosage: STRENGTH: 20 MG/2ML, DOSE: 20MG-DAILY
     Route: 042
     Dates: start: 20160620, end: 20160704
  20. EXFORGE [Concomitant]
     Active Substance: AMLODIPINE BESYLATE\VALSARTAN
     Indication: HYPERTENSION
     Dosage: 5/80 MG-DAILY
     Route: 048
     Dates: start: 20160620, end: 20160702
  21. ALMAGEL (ALMAGATE) [Concomitant]
     Indication: PROPHYLAXIS AGAINST GASTROINTESTINAL ULCER
     Dosage: 15 ML, TID
     Route: 048
     Dates: start: 20160620, end: 20160704

REACTIONS (3)
  - Constipation [Recovered/Resolved]
  - Dyspnoea [Unknown]
  - Hyperkalaemia [Recovered/Resolved]

NARRATIVE: CASE EVENT DATE: 20160622
